FAERS Safety Report 4947404-6 (Version None)
Quarter: 2006Q1

REPORT INFORMATION
  Report Type: 
  Country: None (occurrence: None)
  Receive Date: 20060317
  Receipt Date: 20050603
  Transmission Date: 20060701
  Serious: Yes (Hospitalization, Other)
  Sender: FDA-Public Use
  Company Number: US-MERCK-0506USA00985

PATIENT
  Age: 54 Year
  Sex: Male
  Weight: 109 kg

DRUGS (2)
  1. VIOXX [Suspect]
     Route: 048
     Dates: end: 20030801
  2. PEPCID [Suspect]
     Route: 065

REACTIONS (26)
  - ACUTE RESPIRATORY DISTRESS SYNDROME [None]
  - ANAL FISTULA [None]
  - ASTHMA [None]
  - ATRIAL FIBRILLATION [None]
  - AZOTAEMIA [None]
  - BRONCHITIS [None]
  - CARDIAC DISORDER [None]
  - CEREBROVASCULAR ACCIDENT [None]
  - CHOLECYSTITIS [None]
  - CHOLELITHIASIS [None]
  - DIZZINESS POSTURAL [None]
  - HEMIPARESIS [None]
  - HYPOTENSION [None]
  - LABYRINTHITIS [None]
  - LOSS OF CONSCIOUSNESS [None]
  - PANCREATITIS [None]
  - PERIRECTAL ABSCESS [None]
  - PHARYNGOLARYNGEAL PAIN [None]
  - PLATELET COUNT DECREASED [None]
  - PNEUMONIA [None]
  - PNEUMONIA ASPIRATION [None]
  - RESPIRATORY FAILURE [None]
  - SINUSITIS [None]
  - TREMOR [None]
  - VERTIGO [None]
  - VOMITING [None]
